FAERS Safety Report 5618045-2 (Version None)
Quarter: 2008Q1

REPORT INFORMATION
  Report Type: 
  Country: None (occurrence: None)
  Receive Date: 20080207
  Receipt Date: 20070919
  Transmission Date: 20080703
  Serious: No
  Sender: FDA-Public Use
  Company Number: A0683052A

PATIENT
  Sex: Female

DRUGS (2)
  1. PAXIL [Suspect]
     Indication: DEPRESSION
     Dosage: 37.5MG UNKNOWN
     Route: 065
     Dates: start: 20070101
  2. NO CONCURRENT MEDICATION [Concomitant]

REACTIONS (3)
  - DIZZINESS [None]
  - FEELING OF BODY TEMPERATURE CHANGE [None]
  - NAUSEA [None]
